FAERS Safety Report 5358550-X (Version None)
Quarter: 2007Q2

REPORT INFORMATION
  Report Type: 
  Country: None (occurrence: None)
  Receive Date: 20070601
  Receipt Date: 20070320
  Transmission Date: 20071010
  Serious: No
  Sender: FDA-Public Use
  Company Number: PHEH2007US03399

PATIENT
  Sex: Female

DRUGS (6)
  1. ENABLEX [Suspect]
  2. DILTIAZEM HCL [Suspect]
     Dosage: 180 MG, OD, ORAL
     Route: 048
  3. LIPITOR [Suspect]
     Dosage: 10 MG
  4. SYNTHROID [Suspect]
     Dosage: 200 MG, OD; ORAL
     Route: 048
  5. LEVAQUIN [Suspect]
     Dosage: 500 MG
  6. CLARINEX (LORATADINE, PSEUDOEPHEDRINE SULFATE) [Concomitant]

REACTIONS (2)
  - ALOPECIA [None]
  - DRUG INTERACTION [None]
